FAERS Safety Report 9153950 (Version 1)
Quarter: 2013Q1

REPORT INFORMATION
  Report Type: Spontaneous
  Country: US (occurrence: None)
  Receive Date: 20130306
  Receipt Date: 20130306
  Transmission Date: 20140127
  Serious: Yes (Other)
  Sender: FDA-Public Use
  Company Number: None

PATIENT
  Age: 65 Year
  Sex: Male
  Weight: 79.38 kg

DRUGS (1)
  1. JALYN 0.5MG/0.4 GALAXO [Suspect]
     Indication: BENIGN PROSTATIC HYPERPLASIA
     Dosage: 1  EVERY DAY PO
     Route: 048
     Dates: start: 20130122, end: 20130304

REACTIONS (7)
  - Sexual dysfunction [None]
  - Erectile dysfunction [None]
  - Arthralgia [None]
  - Cold sweat [None]
  - Dyspnoea [None]
  - Insomnia [None]
  - Drug ineffective [None]
